FAERS Safety Report 16886515 (Version 1)
Quarter: 2019Q4

REPORT INFORMATION
  Report Type: Spontaneous
  Country: CA (occurrence: CA)
  Receive Date: 20191004
  Receipt Date: 20191004
  Transmission Date: 20200122
  Serious: Yes (Hospitalization)
  Sender: FDA-Public Use
  Company Number: CA-TEVA-2019-CA-1115614

PATIENT
  Sex: Male

DRUGS (9)
  1. COSENTYX [Suspect]
     Active Substance: SECUKINUMAB
     Route: 058
  2. METHOTREXATE. [Concomitant]
     Active Substance: METHOTREXATE
  3. SULFASALAZINE. [Concomitant]
     Active Substance: SULFASALAZINE
  4. COSENTYX [Suspect]
     Active Substance: SECUKINUMAB
     Indication: PSORIATIC ARTHROPATHY
     Dosage: 10 MILLIGRAM DAILY;
     Route: 058
  5. VOLTAREN [Suspect]
     Active Substance: DICLOFENAC SODIUM
     Indication: PSORIATIC ARTHROPATHY
     Route: 065
  6. BISOPROLOL [Suspect]
     Active Substance: BISOPROLOL
     Indication: HYPERTENSION
     Route: 065
  7. STELARA [Concomitant]
     Active Substance: USTEKINUMAB
  8. ENBREL [Concomitant]
     Active Substance: ETANERCEPT
  9. HUMIRA [Concomitant]
     Active Substance: ADALIMUMAB

REACTIONS (2)
  - Joint swelling [Unknown]
  - Neoplasm malignant [Unknown]
